FAERS Safety Report 16947201 (Version 1)
Quarter: 2019Q4

REPORT INFORMATION
  Report Type: Spontaneous
  Country: US (occurrence: US)
  Receive Date: 20191022
  Receipt Date: 20191022
  Transmission Date: 20200122
  Serious: No
  Sender: FDA-Public Use
  Company Number: US-BECTON DICKINSON-2018BDN00271

PATIENT
  Age: 69 Year
  Sex: Female
  Weight: 78.91 kg

DRUGS (16)
  1. CHLORAPREP WITH TINT [Suspect]
     Active Substance: CHLORHEXIDINE GLUCONATE\ISOPROPYL ALCOHOL
     Indication: INFECTION PROPHYLAXIS
     Dosage: UNK
     Route: 061
     Dates: start: 20180801, end: 20180801
  2. LOSARTAN. [Concomitant]
     Active Substance: LOSARTAN
  3. PHENYLEPHRINE [Concomitant]
     Active Substance: PHENYLEPHRINE HYDROCHLORIDE
  4. MULTIVITAMIN [Concomitant]
     Active Substance: VITAMINS
  5. COLACE [Concomitant]
     Active Substance: DOCUSATE SODIUM
  6. ACETAMINOPHEN. [Concomitant]
     Active Substance: ACETAMINOPHEN
  7. BUPIVICAINE 0.5% [Concomitant]
  8. CHLORHEXIDINE [Suspect]
     Active Substance: CHLORHEXIDINE
     Indication: INFECTION PROPHYLAXIS
     Dosage: PM BEFORE AND AM DAY OF SURGERY
     Route: 061
     Dates: start: 20180731, end: 20180801
  9. HYDROCHLOROTHIAZIDE. [Concomitant]
     Active Substance: HYDROCHLOROTHIAZIDE
  10. PROPOFOL. [Concomitant]
     Active Substance: PROPOFOL
  11. EMEND [Concomitant]
     Active Substance: APREPITANT
  12. ASPIRIN. [Concomitant]
     Active Substance: ASPIRIN
  13. FENTANYL. [Concomitant]
     Active Substance: FENTANYL
  14. DEXAMETHASONE. [Concomitant]
     Active Substance: DEXAMETHASONE
  15. CEFAZOLIN [Concomitant]
     Active Substance: CEFAZOLIN
  16. SCOPALAMINE [Concomitant]
     Active Substance: SCOPOLAMINE

REACTIONS (4)
  - Rash papular [Recovered/Resolved]
  - Rash follicular [Recovered/Resolved]
  - Rash [Recovered/Resolved]
  - Skin irritation [Recovered/Resolved]

NARRATIVE: CASE EVENT DATE: 201808
